FAERS Safety Report 4524032-8 (Version None)
Quarter: 2004Q4

REPORT INFORMATION
  Report Type: 
  Country: None (occurrence: None)
  Receive Date: 20041209
  Receipt Date: 20041123
  Transmission Date: 20050328
  Serious: Yes (Hospitalization)
  Sender: FDA-Public Use
  Company Number: DSA_25443_2004

PATIENT
  Age: 42 Year
  Sex: Male

DRUGS (5)
  1. TEMESTA [Suspect]
     Dosage: 1 MG Q DAY PO
     Route: 048
     Dates: start: 20030101
  2. AUGMENTIN '125' [Suspect]
     Dosage: 3 G Q DAY PO
     Route: 048
  3. LAROXYL [Suspect]
     Dosage: 75 MG Q DAY PO
     Route: 048
     Dates: start: 20021215
  4. OMEPRAZOLE [Suspect]
     Dosage: 20 MG Q DAY PO
     Route: 048
  5. SKENAN [Suspect]
     Dosage: 30 MG Q DAY PO
     Route: 048

REACTIONS (4)
  - ERYTHEMA [None]
  - LYMPHADENOPATHY [None]
  - PRURITUS [None]
  - SKIN LESION [None]
